FAERS Safety Report 17652812 (Version 4)
Quarter: 2020Q3

REPORT INFORMATION
  Report Type: Report from Study
  Country: US (occurrence: US)
  Receive Date: 20200409
  Receipt Date: 20200721
  Transmission Date: 20201102
  Serious: Yes (Other)
  Sender: FDA-Public Use
  Company Number: NVSC2020US096564

PATIENT
  Sex: Female

DRUGS (1)
  1. PIQRAY [Suspect]
     Active Substance: ALPELISIB
     Indication: PRODUCT USED FOR UNKNOWN INDICATION
     Dosage: UNK
     Route: 048

REACTIONS (21)
  - Diabetes mellitus [Unknown]
  - Flatulence [Unknown]
  - Amnesia [Unknown]
  - Discomfort [Unknown]
  - Abdominal discomfort [Unknown]
  - Blood glucose increased [Unknown]
  - Ear discomfort [Unknown]
  - Nausea [Unknown]
  - Muscle spasms [Unknown]
  - Glycosylated haemoglobin increased [Unknown]
  - Oral mucosal blistering [Recovering/Resolving]
  - Taste disorder [Unknown]
  - Lip blister [Recovering/Resolving]
  - Constipation [Unknown]
  - Fatigue [Unknown]
  - Myalgia [Unknown]
  - Oral pustule [Unknown]
  - Stomatitis [Unknown]
  - Dry skin [Unknown]
  - Headache [Unknown]
  - Weight decreased [Unknown]
